FAERS Safety Report 4427432-X (Version None)
Quarter: 2004Q3

REPORT INFORMATION
  Report Type: 
  Country: None (occurrence: None)
  Receive Date: 20040812
  Receipt Date: 20040728
  Transmission Date: 20050211
  Serious: Yes (Life-Threatening, Hospitalization, Other)
  Sender: FDA-Public Use
  Company Number: 04P-130-0268555-00

PATIENT
  Age: 77 Year
  Sex: Female
  Weight: 77 kg

DRUGS (8)
  1. BIAXIN [Suspect]
     Indication: INFECTION PROPHYLAXIS
     Dosage: , ONCE, INTRAVENOUS
     Route: 042
     Dates: start: 20040712, end: 20040712
  2. RUTACEOUS FLAVONOIDS [Concomitant]
  3. OMEPRAZOLE [Concomitant]
  4. NICORANDIL [Concomitant]
  5. RAMIPRIL [Concomitant]
  6. FENOFIBRATE [Concomitant]
  7. BUSPIRONE [Concomitant]
  8. NADROPARIN [Concomitant]

REACTIONS (8)
  - ACUTE PULMONARY OEDEMA [None]
  - BRONCHOSPASM [None]
  - CARDIAC FAILURE [None]
  - DYSPNOEA [None]
  - HYPERTENSIVE CRISIS [None]
  - LARYNGEAL OEDEMA [None]
  - OXYGEN SATURATION DECREASED [None]
  - PULMONARY EMBOLISM [None]
